FAERS Safety Report 13720265 (Version 1)
Quarter: 2017Q3

REPORT INFORMATION
  Report Type: Other
  Country: DE (occurrence: DE)
  Receive Date: 20170706
  Receipt Date: 20170706
  Transmission Date: 20171127
  Serious: No
  Sender: FDA-Public Use
  Company Number: DE-LUPIN PHARMACEUTICALS INC.-E2B_00007040

PATIENT
  Sex: Female

DRUGS (1)
  1. SIMVASTATIN. [Suspect]
     Active Substance: SIMVASTATIN
     Indication: HYPERCHOLESTEROLAEMIA
     Dosage: 10 MG,QD,
     Route: 048

REACTIONS (3)
  - Hallucination [Recovered/Resolved]
  - Anxiety [Recovered/Resolved]
  - Persecutory delusion [Recovered/Resolved]
